FAERS Safety Report 26126684 (Version 1)
Quarter: 2025Q4

REPORT INFORMATION
  Report Type: Spontaneous
  Country: EU (occurrence: EU)
  Receive Date: 20251205
  Receipt Date: 20251205
  Transmission Date: 20260117
  Serious: Yes (Life-Threatening, Other)
  Sender: AMGEN
  Company Number: EU-AMGEN-ROUSP2025237194

PATIENT
  Age: 51 Year
  Sex: Female

DRUGS (2)
  1. XGEVA [Suspect]
     Active Substance: DENOSUMAB
     Indication: Breast cancer
     Dosage: UNK
     Route: 065
  2. TRASTUZUMAB DERUXTECAN [Concomitant]
     Active Substance: TRASTUZUMAB DERUXTECAN
     Indication: Breast cancer

REACTIONS (14)
  - Acute respiratory failure [Unknown]
  - Pancytopenia [Unknown]
  - Hepatic cytolysis [Unknown]
  - Pneumocystis jirovecii infection [Unknown]
  - Thrombocytopenia [Unknown]
  - Leukopenia [Unknown]
  - Hepatocellular injury [Unknown]
  - Cholestasis [Unknown]
  - Immunosuppression [Unknown]
  - Chlamydial infection [Unknown]
  - Mycoplasma infection [Unknown]
  - Anaemia [Unknown]
  - Alopecia [Unknown]
  - Lymphopenia [Unknown]
